FAERS Safety Report 17939362 (Version 1)
Quarter: 2020Q2

REPORT INFORMATION
  Report Type: Other
  Country: US (occurrence: US)
  Receive Date: 20200625
  Receipt Date: 20200625
  Transmission Date: 20200714
  Serious: Yes (Hospitalization)
  Sender: FDA-Public Use
  Company Number: US-LABORATORIOS GRIFOLS,S.A.-2086656

PATIENT
  Age: 63 Year
  Sex: Female

DRUGS (1)
  1. NORMAL SALINE [Suspect]
     Active Substance: SODIUM CHLORIDE
     Indication: BRONCHOALVEOLAR LAVAGE

REACTIONS (1)
  - Pleural effusion [Recovered/Resolved]
